FAERS Safety Report 4606725-7 (Version None)
Quarter: 2005Q1

REPORT INFORMATION
  Report Type: 
  Country: None (occurrence: None)
  Receive Date: 20050309
  Receipt Date: 20050218
  Transmission Date: 20050727
  Serious: Yes (Hospitalization, Other)
  Sender: FDA-Public Use
  Company Number: USA050291247

PATIENT
  Age: 49 Year
  Sex: Female

DRUGS (1)
  1. HUMALOG [Suspect]
     Dosage: 26 U/3 DAY
     Dates: start: 20000101

REACTIONS (4)
  - BLOOD GLUCOSE INCREASED [None]
  - EYE DISORDER [None]
  - PANCREATITIS [None]
  - PHARMACEUTICAL PRODUCT COMPLAINT [None]
